FAERS Safety Report 6904306-3 (Version None)
Quarter: 2010Q3

REPORT INFORMATION
  Report Type: 
  Country: None (occurrence: None)
  Receive Date: 20100804
  Receipt Date: 20090421
  Transmission Date: 20110219
  Serious: No
  Sender: FDA-Public Use
  Company Number: US-PFIZER INC-2009175437

PATIENT
  Sex: Female
  Weight: 63.5 kg

DRUGS (14)
  1. LYRICA [Suspect]
     Indication: NEURALGIA
     Dosage: 200 MG, UNK
     Dates: start: 20080101, end: 20080101
  2. SKELAXIN [Concomitant]
     Dosage: UNK
  3. HYDROCHLOROTHIAZIDE [Concomitant]
     Dosage: UNK
  4. NEXIUM [Concomitant]
     Dosage: UNK
  5. GEODON [Concomitant]
     Dosage: UNK
  6. LITHIUM CARBONATE [Concomitant]
  7. ALLEGRA [Concomitant]
     Dosage: UNK
  8. PRAVASTATIN [Concomitant]
     Dosage: UNK
  9. TAMSULOSIN HYDROCHLORIDE [Concomitant]
     Dosage: UNK
  10. TRAMADOL [Concomitant]
     Dosage: UNK
  11. MECLIZINE [Concomitant]
     Dosage: UNK
  12. CYMBALTA [Concomitant]
     Dosage: UNK
  13. ZANAFLEX [Concomitant]
     Dosage: UNK
  14. TOPROL-XL [Concomitant]
     Dosage: UNK

REACTIONS (2)
  - GASTRITIS [None]
  - GASTROINTESTINAL PAIN [None]
